FAERS Safety Report 21410740 (Version 1)
Quarter: 2022Q4

REPORT INFORMATION
  Report Type: Report from Study
  Country: US (occurrence: None)
  Receive Date: 20221005
  Receipt Date: 20221005
  Transmission Date: 20230113
  Serious: Yes (Hospitalization, Other)
  Sender: FDA-Public Use
  Company Number: 2022A332284

PATIENT
  Sex: Female
  Weight: 68 kg

DRUGS (1)
  1. FARXIGA [Suspect]
     Active Substance: DAPAGLIFLOZIN PROPANEDIOL
     Indication: Renal disorder
     Route: 048

REACTIONS (7)
  - Pleural effusion [Unknown]
  - Pericardial effusion [Unknown]
  - Cardiac failure congestive [Unknown]
  - Illness [Not Recovered/Not Resolved]
  - Ovarian cyst [Unknown]
  - Back pain [Not Recovered/Not Resolved]
  - Kidney infection [Unknown]
